FAERS Safety Report 9463916 (Version 2)
Quarter: 2013Q3

REPORT INFORMATION
  Report Type: Spontaneous
  Country: DK (occurrence: DK)
  Receive Date: 20130819
  Receipt Date: 20130826
  Transmission Date: 20140515
  Serious: Yes (Other)
  Sender: FDA-Public Use
  Company Number: DK-JNJFOC-20130803596

PATIENT
  Sex: 0

DRUGS (10)
  1. FENTANYL CITRATE [Suspect]
     Indication: ANAESTHESIA
     Route: 065
  2. SUFENTANIL [Suspect]
     Indication: ANAESTHESIA
     Route: 065
  3. PARACETAMOL [Suspect]
     Route: 065
  4. PARACETAMOL [Suspect]
     Indication: ANALGESIC THERAPY
     Route: 065
  5. TOPIRAMATE [Suspect]
     Indication: EPILEPSY
     Route: 065
  6. TRAMADOL [Suspect]
     Indication: ANALGESIC THERAPY
     Route: 065
  7. RISPERIDONE [Suspect]
     Indication: PSYCHOTIC DISORDER
     Route: 065
  8. HALOPERIDOL [Suspect]
     Indication: PSYCHOTIC DISORDER
     Route: 065
  9. METHYLPHENIDATE [Suspect]
     Indication: PSYCHOMOTOR HYPERACTIVITY
     Route: 065
  10. PIPAMPERONE [Suspect]
     Indication: PSYCHOTIC DISORDER
     Route: 065

REACTIONS (1)
  - Adverse drug reaction [Unknown]
